FAERS Safety Report 10568103 (Version 3)
Quarter: 2014Q4

REPORT INFORMATION
  Report Type: Report from Study
  Country: DE (occurrence: DE)
  Receive Date: 20141106
  Receipt Date: 20141110
  Transmission Date: 20150529
  Serious: Yes (Hospitalization, Other)
  Sender: FDA-Public Use
  Company Number: PHHY2014DE085936

PATIENT
  Sex: Male

DRUGS (8)
  1. FRESUBIN [Concomitant]
     Active Substance: AMINO ACIDS\DEXTROSE\ELECTROLYTES NOS\SOYBEAN OIL\VITAMINS
     Indication: CACHEXIA
     Route: 065
     Dates: start: 20140407
  2. PALLADON [Concomitant]
     Active Substance: HYDROMORPHONE
     Indication: PAIN
     Dosage: 20 MG, BID
     Route: 048
  3. MST//MORPHINE SULFATE [Concomitant]
     Indication: PAIN
     Dosage: 20 MG, UNK
     Route: 065
     Dates: start: 20140306
  4. PARACODIN//DIHYDROCODEINE [Concomitant]
     Indication: METASTASIS
     Route: 065
     Dates: start: 20140306
  5. AFINITOR [Suspect]
     Active Substance: EVEROLIMUS
     Indication: RENAL CELL CARCINOMA
     Dosage: 10 MG, QD
     Route: 048
     Dates: start: 20140310, end: 20140528
  6. MCP//METOCLOPRAMIDE [Concomitant]
     Indication: PROPHYLAXIS OF NAUSEA AND VOMITING
     Route: 065
     Dates: start: 20140310
  7. NOVAMINOSULFON [Concomitant]
     Active Substance: METAMIZOLE SODIUM
     Indication: CHEST PAIN
     Dosage: 500 MG, UNK
     Route: 065
     Dates: start: 20140407
  8. HERBAL NOS [Concomitant]
     Active Substance: HERBALS
     Indication: PROPHYLAXIS OF NAUSEA AND VOMITING
     Route: 065
     Dates: start: 20140407

REACTIONS (9)
  - Chest pain [Unknown]
  - Metastases to thorax [Not Recovered/Not Resolved]
  - Lung infection [Recovered/Resolved]
  - Pneumonia [Recovered/Resolved]
  - Metastases to lung [Recovered/Resolved]
  - Dyspnoea [Unknown]
  - Cough [Unknown]
  - Pleural effusion [Unknown]
  - Metastases to chest wall [Not Recovered/Not Resolved]

NARRATIVE: CASE EVENT DATE: 20140528
